FAERS Safety Report 8921467 (Version 2)
Quarter: 2013Q1

REPORT INFORMATION
  Report Type: Report from Study
  Country: DE (occurrence: DE)
  Receive Date: 20121122
  Receipt Date: 20130129
  Transmission Date: 20140127
  Serious: Yes (Other)
  Sender: FDA-Public Use
  Company Number: DE-BIOGENIDEC-2012BI052350

PATIENT
  Age: 40 Year
  Sex: Male

DRUGS (4)
  1. TYSABRI [Suspect]
     Indication: MULTIPLE SCLEROSIS
     Route: 042
     Dates: start: 20080425, end: 20120913
  2. TYSABRI [Suspect]
     Indication: MULTIPLE SCLEROSIS
     Route: 042
     Dates: start: 20121119
  3. TIMONIL [Concomitant]
     Indication: EPILEPSY
     Route: 048
     Dates: start: 2003
  4. VALPROAT [Concomitant]
     Indication: EPILEPSY
     Route: 048
     Dates: start: 20120914

REACTIONS (1)
  - Progressive relapsing multiple sclerosis [Not Recovered/Not Resolved]
